FAERS Safety Report 12059162 (Version 5)
Quarter: 2016Q2

REPORT INFORMATION
  Report Type: Report from Study
  Country: AU (occurrence: AU)
  Receive Date: 20160210
  Receipt Date: 20160616
  Transmission Date: 20160815
  Serious: Yes (Hospitalization)
  Sender: FDA-Public Use
  Company Number: AU-ROCHE-1709067

PATIENT
  Age: 72 Year
  Sex: Male

DRUGS (5)
  1. METROL (AUSTRALIA) [Concomitant]
     Route: 048
  2. LIPITOR [Concomitant]
     Active Substance: ATORVASTATIN CALCIUM
     Dosage: 1 IN THE EVENING
     Route: 065
  3. PLAVIX [Suspect]
     Active Substance: CLOPIDOGREL BISULFATE
     Indication: ANTICOAGULANT THERAPY
     Dosage: 1 IN THE MORNING
     Route: 048
  4. ACTEMRA [Suspect]
     Active Substance: TOCILIZUMAB
     Indication: RHEUMATOID ARTHRITIS
     Route: 042
     Dates: start: 20120125
  5. METROL (AUSTRALIA) [Concomitant]
     Route: 065

REACTIONS (5)
  - Urinary tract infection [Recovered/Resolved]
  - Palpitations [Recovered/Resolved]
  - Haematuria [Recovered/Resolved]
  - Nasopharyngitis [Recovered/Resolved]
  - Myocardial infarction [Recovered/Resolved]

NARRATIVE: CASE EVENT DATE: 20160209
